FAERS Safety Report 12608696 (Version 2)
Quarter: 2016Q3

REPORT INFORMATION
  Report Type: Spontaneous
  Country: FR (occurrence: FR)
  Receive Date: 20160729
  Receipt Date: 20160804
  Transmission Date: 20161109
  Serious: Yes (Hospitalization, Other)
  Sender: FDA-Public Use
  Company Number: FR-009507513-1607FRA010898

PATIENT
  Age: 64 Year
  Sex: Male
  Weight: 74.5 kg

DRUGS (8)
  1. NOXAFIL [Suspect]
     Active Substance: POSACONAZOLE
     Dosage: 300 MG, QAM (3 TABLETS IN THE MORNING)
     Route: 048
     Dates: start: 2016
  2. MYLOTARG [Concomitant]
     Active Substance: GEMTUZUMAB OZOGAMICIN
  3. LERCAN [Concomitant]
     Active Substance: LERCANIDIPINE
     Dosage: 10 MG, QD
     Dates: start: 2016
  4. RAMIPRIL. [Concomitant]
     Active Substance: RAMIPRIL
     Indication: HYPERTENSION
     Dosage: UNK
     Dates: start: 20160526
  5. ARACYTINE [Concomitant]
     Active Substance: CYTARABINE
     Dosage: ANOTHER INDUCTION THERAPY
     Dates: start: 2016
  6. NOXAFIL [Suspect]
     Active Substance: POSACONAZOLE
     Dosage: UNK
     Route: 048
     Dates: start: 2016
  7. ARACYTINE [Concomitant]
     Active Substance: CYTARABINE
     Dosage: 2 G/M2, BID, ON DAY 1, DAY 3 AND DAY 5, CYCLICAL (3 CYCLES)
     Dates: start: 2015
  8. LERCAN [Concomitant]
     Active Substance: LERCANIDIPINE
     Dosage: HALF A TABLET, QAM
     Route: 048
     Dates: end: 2016

REACTIONS (12)
  - Cytogenetic abnormality [Unknown]
  - Herpes virus infection [Unknown]
  - Aplasia [Recovered/Resolved]
  - Erythema [Unknown]
  - Respiratory tract infection fungal [Unknown]
  - Klebsiella sepsis [Recovered/Resolved]
  - Acute myeloid leukaemia [Unknown]
  - Staphylococcal infection [Unknown]
  - Hypertension [Unknown]
  - Device related infection [Unknown]
  - Periarthritis [Recovering/Resolving]
  - Mucosal inflammation [Recovering/Resolving]

NARRATIVE: CASE EVENT DATE: 2016
